FAERS Safety Report 9127142 (Version 2)
Quarter: 2013Q1

REPORT INFORMATION
  Report Type: Spontaneous
  Country: CA (occurrence: CA)
  Receive Date: 20130228
  Receipt Date: 20130327
  Transmission Date: 20140127
  Serious: Yes (Hospitalization, Other)
  Sender: FDA-Public Use
  Company Number: CA-PFIZER INC-2013070580

PATIENT
  Age: 20 Year
  Sex: Female

DRUGS (1)
  1. TECTA [Suspect]
     Dosage: 40 MG, 1X/DAY
     Route: 048
     Dates: start: 20120428, end: 20120429

REACTIONS (2)
  - Asthma [Recovering/Resolving]
  - Chest discomfort [Recovering/Resolving]
